FAERS Safety Report 8822966 (Version 2)
Quarter: 2012Q4

REPORT INFORMATION
  Report Type: 
  Country: US (occurrence: US)
  Receive Date: 20121003
  Receipt Date: 20121212
  Transmission Date: 20130627
  Serious: Yes (Death)
  Sender: FDA-Public Use
  Company Number: US-GILEAD-2012-0062269

PATIENT
  Sex: Male

DRUGS (3)
  1. LETAIRIS [Suspect]
     Indication: PULMONARY HYPERTENSION
     Dosage: 10 mg, UNK
     Route: 048
     Dates: start: 201111
  2. LETAIRIS [Suspect]
     Indication: CARDIAC DISORDER
     Dosage: 5 mg, UNK
     Route: 048
     Dates: end: 201111
  3. LETAIRIS [Suspect]
     Indication: SCLERODERMA

REACTIONS (1)
  - Cardiac failure congestive [Fatal]
